FAERS Safety Report 8611871-7 (Version None)
Quarter: 2012Q3

REPORT INFORMATION
  Report Type: 
  Country: None (occurrence: None)
  Receive Date: 20120822
  Receipt Date: 20120816
  Transmission Date: 20120928
  Serious: Yes (Other)
  Sender: FDA-Public Use
  Company Number: US-PFIZER INC-2011263179

PATIENT
  Age: 41 Year
  Sex: Male
  Weight: 63.492 kg

DRUGS (8)
  1. GABAPENTIN [Suspect]
     Indication: NERVE INJURY
     Dosage: UNK
     Dates: start: 20040101
  2. TRAMADOL [Concomitant]
     Dosage: 50MG THREE TO FOUR TIMES A DAY
  3. NEURONTIN [Suspect]
     Indication: NERVE INJURY
     Dosage: 600 MG, 3X/DAY
     Dates: start: 20040101
  4. MORPHINE [Concomitant]
  5. ELMIRON [Concomitant]
  6. VICODIN [Concomitant]
     Dosage: 7.5 MG, 4X/DAY
  7. GABAPENTIN [Suspect]
     Indication: MIGRAINE
  8. NEURONTIN [Suspect]
     Indication: MIGRAINE

REACTIONS (3)
  - HEARING IMPAIRED [None]
  - DRUG INEFFECTIVE [None]
  - MALAISE [None]
